FAERS Safety Report 12800387 (Version 2)
Quarter: 2016Q4

REPORT INFORMATION
  Report Type: Spontaneous
  Country: FR (occurrence: FR)
  Receive Date: 20160930
  Receipt Date: 20161027
  Transmission Date: 20170207
  Serious: Yes (Hospitalization, Other)
  Sender: FDA-Public Use
  Company Number: FR-009507513-1609FRA014734

PATIENT
  Age: 92 Year
  Sex: Male

DRUGS (5)
  1. BARACLUDE [Concomitant]
     Active Substance: ENTECAVIR
     Dosage: 1 TABLET IN THE MORNING
     Route: 048
  2. LEVOTHYROX [Concomitant]
     Active Substance: LEVOTHYROXINE
     Dosage: 2 TABLETS IN THE MORNING
     Route: 048
  3. PREDNISOLONE. [Concomitant]
     Active Substance: PREDNISOLONE
     Dosage: 5 MG, QD
     Route: 048
  4. CALCIDOSE [Concomitant]
     Active Substance: CALCIUM CARBONATE
     Dosage: 1 TABLET IN THE MORNING
     Route: 048
  5. INVANZ [Suspect]
     Active Substance: ERTAPENEM SODIUM
     Indication: LUNG DISORDER
     Dosage: 1 G, QD
     Route: 048
     Dates: start: 20160905, end: 20160909

REACTIONS (2)
  - Neutropenia [Recovered/Resolved]
  - Diarrhoea [Recovered/Resolved]

NARRATIVE: CASE EVENT DATE: 20160909
